FAERS Safety Report 5603340-3 (Version None)
Quarter: 2008Q1

REPORT INFORMATION
  Report Type: 
  Country: None (occurrence: None)
  Receive Date: 20080122
  Receipt Date: 20080107
  Transmission Date: 20080703
  Serious: Yes (Hospitalization, Other)
  Sender: FDA-Public Use
  Company Number: A-JP2008-19108

PATIENT
  Age: 54 Year
  Sex: Female

DRUGS (3)
  1. TRACLEER [Suspect]
     Indication: PULMONARY HYPERTENSION
     Dosage: 62.5 MG, BID, ORAL
     Route: 048
     Dates: start: 20071219, end: 20080107
  2. SULFAMETHOXAZOLE W/TRIMETHOPRIM (SULFAMETHOXAZOLE, TRIMETHOPRIM) [Concomitant]
  3. AZATHIOPRINE [Concomitant]

REACTIONS (2)
  - NEUTROPHIL COUNT DECREASED [None]
  - PLATELET COUNT DECREASED [None]
